FAERS Safety Report 16896880 (Version 1)
Quarter: 2019Q4

REPORT INFORMATION
  Report Type: Spontaneous
  Country: US (occurrence: US)
  Receive Date: 20191009
  Receipt Date: 20191009
  Transmission Date: 20200122
  Serious: Yes (Death, Hospitalization)
  Sender: FDA-Public Use
  Company Number: US-ROCHE-2424519

PATIENT
  Sex: Male

DRUGS (1)
  1. ACTEMRA [Suspect]
     Active Substance: TOCILIZUMAB
     Indication: JUVENILE IDIOPATHIC ARTHRITIS
     Dosage: 400 MG/20 ML
     Route: 042
     Dates: start: 20110825

REACTIONS (4)
  - Alveolar proteinosis [Fatal]
  - Interstitial lung disease [Fatal]
  - Chronic respiratory failure [Fatal]
  - Haemophagocytic lymphohistiocytosis [Fatal]
